FAERS Safety Report 19712383 (Version 1)
Quarter: 2021Q3

REPORT INFORMATION
  Report Type: Spontaneous
  Country: FR (occurrence: FR)
  Receive Date: 20210817
  Receipt Date: 20210817
  Transmission Date: 20211014
  Serious: Yes (Disabling, Other)
  Sender: FDA-Public Use
  Company Number: FR-009507513-2108FRA003849

PATIENT
  Age: 72 Year
  Sex: Female

DRUGS (1)
  1. PEMBROLIZUMAB. [Suspect]
     Active Substance: PEMBROLIZUMAB
     Indication: MALIGNANT MELANOMA STAGE IV
     Dosage: UNK

REACTIONS (4)
  - Polyarthritis [Unknown]
  - Carpal tunnel syndrome [Unknown]
  - Immune-mediated enterocolitis [Unknown]
  - Vitiligo [Unknown]
